FAERS Safety Report 8287880-7 (Version None)
Quarter: 2012Q2

REPORT INFORMATION
  Report Type: 
  Country: None (occurrence: None)
  Receive Date: 20120416
  Receipt Date: 20120411
  Transmission Date: 20120825
  Serious: Yes (Hospitalization, Other)
  Sender: FDA-Public Use
  Company Number: BR-ABBOTT-12P-020-0922385-00

PATIENT
  Sex: Female

DRUGS (3)
  1. AZATHIOPRINE [Concomitant]
     Indication: CROHN'S DISEASE
     Dates: start: 20101001
  2. OMEPRAZOLE [Concomitant]
     Indication: GASTRIC DISORDER
     Dosage: FASTING
     Dates: start: 20100101
  3. HUMIRA [Suspect]
     Indication: CROHN'S DISEASE
     Dates: start: 20111118, end: 20120201

REACTIONS (3)
  - INTESTINAL FISTULA [None]
  - CROHN'S DISEASE [None]
  - GASTROINTESTINAL INFLAMMATION [None]
